FAERS Safety Report 9259216 (Version 2)
Quarter: 2013Q4

REPORT INFORMATION
  Report Type: Spontaneous
  Country: PT (occurrence: PT)
  Receive Date: 20130426
  Receipt Date: 20131001
  Transmission Date: 20140711
  Serious: Yes (Life-Threatening, Other)
  Sender: FDA-Public Use
  Company Number: PT-009507513-1304PRT014649

PATIENT
  Age: 38 Year
  Sex: Female
  Weight: 83 kg

DRUGS (2)
  1. BRIDION [Suspect]
     Indication: NEUROMUSCULAR BLOCKADE REVERSAL
     Dosage: UNK MG, UNK
     Route: 042
     Dates: start: 20130312, end: 20130312
  2. ESMERON [Suspect]
     Dosage: INITIAL BOLUS OF 50 MG AND 0.5MG/KG/HOUR
     Route: 042
     Dates: start: 20130312, end: 20130312

REACTIONS (4)
  - Respiratory failure [Recovered/Resolved]
  - Coma [Recovered/Resolved]
  - Mechanical ventilation [Unknown]
  - Recurrence of neuromuscular blockade [Recovered/Resolved]
